FAERS Safety Report 7048057-6 (Version None)
Quarter: 2010Q4

REPORT INFORMATION
  Report Type: 
  Country: None (occurrence: None)
  Receive Date: 20101015
  Receipt Date: 20101007
  Transmission Date: 20110411
  Serious: Yes (Other)
  Sender: FDA-Public Use
  Company Number: B0676726A

PATIENT
  Sex: Female

DRUGS (5)
  1. SERETIDE [Suspect]
     Indication: ASTHMA
     Dosage: 500MCG PER DAY
     Route: 055
     Dates: start: 20090619, end: 20100730
  2. THEOLONG [Concomitant]
     Dosage: 400MG PER DAY
     Route: 048
  3. ACCOLATE [Concomitant]
     Dosage: 40MG PER DAY
     Route: 048
  4. ALESION [Concomitant]
     Dosage: 20MG PER DAY
     Route: 048
  5. AMLODIPINE BESYLATE [Concomitant]
     Dosage: 5MG PER DAY
     Route: 048

REACTIONS (3)
  - CRYPTOCOCCOSIS [None]
  - PNEUMONIA [None]
  - PYREXIA [None]
